FAERS Safety Report 13397441 (Version 2)
Quarter: 2017Q2

REPORT INFORMATION
  Report Type: Spontaneous
  Country: JP (occurrence: JP)
  Receive Date: 20170403
  Receipt Date: 20170531
  Transmission Date: 20170830
  Serious: Yes (Hospitalization)
  Sender: FDA-Public Use
  Company Number: JP-SERB S.A.S.-1064928

PATIENT
  Age: 61 Year
  Sex: Male

DRUGS (1)
  1. CYANOKIT [Suspect]
     Active Substance: HYDROXOCOBALAMIN
     Indication: CHEMICAL POISONING
     Route: 041

REACTIONS (1)
  - Acute kidney injury [Unknown]
